FAERS Safety Report 10078211 (Version 2)
Quarter: 2014Q2

REPORT INFORMATION
  Report Type: Spontaneous
  Country: CL (occurrence: CL)
  Receive Date: 20140415
  Receipt Date: 20140423
  Transmission Date: 20141212
  Serious: Yes (Other)
  Sender: FDA-Public Use
  Company Number: CL-ROCHE-1383814

PATIENT
  Age: 59 Year
  Sex: Male
  Weight: 82 kg

DRUGS (6)
  1. XELODA [Suspect]
     Indication: COLON CANCER
     Route: 048
     Dates: start: 20130704
  2. OXALIPLATIN [Suspect]
     Indication: COLON CANCER
     Route: 042
     Dates: start: 20140404, end: 20140404
  3. HYDROCHLOROTHIAZIDE [Concomitant]
  4. NITRENDIPINE [Concomitant]
  5. ASPIRIN [Concomitant]
  6. PARACETAMOL [Concomitant]

REACTIONS (3)
  - Erythema multiforme [Not Recovered/Not Resolved]
  - Pruritus [Not Recovered/Not Resolved]
  - Paraesthesia [Not Recovered/Not Resolved]
